FAERS Safety Report 25344282 (Version 2)
Quarter: 2025Q3

REPORT INFORMATION
  Report Type: Report from Study
  Country: US (occurrence: US)
  Receive Date: 20250521
  Receipt Date: 20250709
  Transmission Date: 20251021
  Serious: Yes (Hospitalization, Other)
  Sender: ABBVIE
  Company Number: US-ABBVIE-6283363

PATIENT
  Age: 58 Year
  Sex: Male

DRUGS (1)
  1. CREON [Suspect]
     Active Substance: PANCRELIPASE AMYLASE\PANCRELIPASE LIPASE\PANCRELIPASE PROTEASE
     Indication: Product used for unknown indication
     Route: 048
     Dates: start: 20220301

REACTIONS (11)
  - Sepsis [Unknown]
  - Gingival disorder [Unknown]
  - Clostridium difficile infection [Unknown]
  - Feeling abnormal [Unknown]
  - Fatigue [Unknown]
  - Diarrhoea [Unknown]
  - Weight decreased [Unknown]
  - Post procedural complication [Unknown]
  - Pancreatic carcinoma [Unknown]
  - Unevaluable event [Unknown]
  - Influenza [Unknown]

NARRATIVE: CASE EVENT DATE: 20250101
